FAERS Safety Report 23818865 (Version 1)
Quarter: 2024Q2

REPORT INFORMATION
  Report Type: Spontaneous
  Country: CA (occurrence: CA)
  Receive Date: 20240506
  Receipt Date: 20240506
  Transmission Date: 20240716
  Serious: Yes (Other)
  Sender: FDA-Public Use
  Company Number: CA-AUROBINDO-AUR-APL-2024-021317

PATIENT
  Sex: Male

DRUGS (6)
  1. MOXIFLOXACIN [Suspect]
     Active Substance: MOXIFLOXACIN
     Indication: Mycobacterium chelonae infection
     Dosage: UNK
     Route: 065
  2. MOXIFLOXACIN [Suspect]
     Active Substance: MOXIFLOXACIN
     Indication: Drug intolerance
  3. LINEZOLID [Suspect]
     Active Substance: LINEZOLID
     Indication: Mycobacterium chelonae infection
     Dosage: UNK
     Route: 065
  4. LINEZOLID [Suspect]
     Active Substance: LINEZOLID
     Indication: Drug intolerance
  5. AZITHROMYCIN ANHYDROUS [Suspect]
     Active Substance: AZITHROMYCIN ANHYDROUS
     Indication: Mycobacterium chelonae infection
     Dosage: UNK
     Route: 065
  6. TOBRAMYCIN [Suspect]
     Active Substance: TOBRAMYCIN\TOBRAMYCIN SULFATE
     Indication: Mycobacterium chelonae infection
     Dosage: UNK
     Route: 065

REACTIONS (2)
  - Thrombocytopenia [Recovered/Resolved]
  - Ototoxicity [Recovered/Resolved]
